FAERS Safety Report 22400081 (Version 2)
Quarter: 2023Q2

REPORT INFORMATION
  Report Type: Spontaneous
  Country: JP (occurrence: None)
  Receive Date: 20230602
  Receipt Date: 20230606
  Transmission Date: 20230722
  Serious: Yes (Other)
  Sender: FDA-Public Use
  Company Number: 2023A037477

PATIENT
  Age: 87 Year
  Sex: Male
  Weight: 77 kg

DRUGS (4)
  1. DAPAGLIFLOZIN [Suspect]
     Active Substance: DAPAGLIFLOZIN
     Indication: Type 2 diabetes mellitus
     Route: 048
     Dates: start: 20230107, end: 20230114
  2. AMLODIPINE\TELMISARTAN [Concomitant]
     Active Substance: AMLODIPINE\TELMISARTAN
     Dosage: DOSE UNKNOWN
     Route: 048
     Dates: start: 20150601
  3. JANUVIA [Concomitant]
     Active Substance: SITAGLIPTIN PHOSPHATE
     Indication: Type 2 diabetes mellitus
     Dosage: NUMBER OF SEPARATE DOSAGES UNKNOWN
     Dates: start: 20170926
  4. PRAVASTATIN SODIUM [Concomitant]
     Active Substance: PRAVASTATIN SODIUM
     Dosage: DOSE UNKNOWN
     Dates: start: 20150601

REACTIONS (4)
  - Angioedema [Recovered/Resolved]
  - Penile swelling [Recovered/Resolved]
  - Lip pruritus [Recovered/Resolved]
  - Thirst [Recovered/Resolved]

NARRATIVE: CASE EVENT DATE: 20230114
